FAERS Safety Report 21023124 (Version 1)
Quarter: 2022Q2

REPORT INFORMATION
  Report Type: Spontaneous
  Country: DE (occurrence: None)
  Receive Date: 20220629
  Receipt Date: 20220629
  Transmission Date: 20220720
  Serious: Yes (Other)
  Sender: FDA-Public Use
  Company Number: 2022A233573

PATIENT
  Age: 46 Year
  Sex: Male

DRUGS (1)
  1. LYNPARZA [Suspect]
     Active Substance: OLAPARIB
     Indication: Rectal cancer
     Route: 048

REACTIONS (3)
  - Malignant neoplasm progression [Unknown]
  - Haemorrhage [Unknown]
  - Off label use [Unknown]
